FAERS Safety Report 9980322 (Version 2)
Quarter: 2015Q1

REPORT INFORMATION
  Report Type: Report from Study
  Country: MC (occurrence: MC)
  Receive Date: 20140307
  Receipt Date: 20150127
  Transmission Date: 20150721
  Serious: Yes (Hospitalization)
  Sender: FDA-Public Use
  Company Number: MC-ROCHE-1354972

PATIENT
  Sex: Male

DRUGS (2)
  1. RITUXIMAB [Suspect]
     Active Substance: RITUXIMAB
     Indication: RHEUMATOID ARTHRITIS
     Route: 042
     Dates: start: 20080320
  2. VOLTARENE [Concomitant]
     Active Substance: DICLOFENAC SODIUM

REACTIONS (7)
  - Sinusitis [Recovered/Resolved]
  - Abdominal pain upper [Recovered/Resolved]
  - Gastritis [Not Recovered/Not Resolved]
  - Influenza like illness [Recovered/Resolved]
  - Pharyngitis [Recovered/Resolved]
  - Oropharyngeal pain [Recovered/Resolved]
  - Vertigo [Recovered/Resolved]

NARRATIVE: CASE EVENT DATE: 200811
